FAERS Safety Report 12376018 (Version 2)
Quarter: 2016Q2

REPORT INFORMATION
  Report Type: Other
  Country: JP (occurrence: JP)
  Receive Date: 20160517
  Receipt Date: 20160616
  Transmission Date: 20160815
  Serious: Yes (Hospitalization)
  Sender: FDA-Public Use
  Company Number: 2016-000808 WARNER CHILCOTT

PATIENT
  Age: 75 Year
  Sex: Male

DRUGS (9)
  1. CALONAL [Concomitant]
     Active Substance: ACETAMINOPHEN
  2. LEVOFLOXACIN HEMIHYDRATE [Concomitant]
     Active Substance: LEVOFLOXACIN
  3. OMEPRAZOLE. [Concomitant]
     Active Substance: OMEPRAZOLE
  4. ADSORBIN [Concomitant]
     Active Substance: ALUMINUM SILICATE
  5. BIOFERMIN [Concomitant]
     Active Substance: BACILLUS SUBTILIS\LACTOBACILLUS ACIDOPHILUS\STREPTOCOCCUS FAECAIS
  6. ONEALFA [Concomitant]
     Active Substance: ALFACALCIDOL
     Dates: end: 20151225
  7. ACTONEL [Suspect]
     Active Substance: RISEDRONATE SODIUM
     Indication: OSTEOPOROSIS
     Route: 048
     Dates: start: 20130719, end: 20151225
  8. BIODIASTASE 1000 [Concomitant]
  9. DIASTASE [Concomitant]
     Active Substance: DIASTASE

REACTIONS (3)
  - Stress fracture [Unknown]
  - Osteonecrosis [Recovered/Resolved]
  - Arthralgia [Unknown]

NARRATIVE: CASE EVENT DATE: 20151013
